FAERS Safety Report 7934760-X (Version None)
Quarter: 2011Q4

REPORT INFORMATION
  Report Type: 
  Country: None (occurrence: None)
  Receive Date: 20111116
  Receipt Date: 20111108
  Transmission Date: 20120403
  Serious: Yes (Hospitalization)
  Sender: FDA-Public Use
  Company Number: 2011SP042438

PATIENT
  Age: 18 Year
  Sex: Female
  Weight: 37 kg

DRUGS (4)
  1. NUVARING [Suspect]
     Indication: CONTRACEPTION
     Dosage: ;UNK;VAG
     Dates: start: 20110201
  2. NUVARING [Suspect]
     Indication: DYSMENORRHOEA
     Dosage: ;UNK;VAG
     Dates: start: 20110201
  3. NUVARING [Suspect]
     Indication: CONTRACEPTION
     Dosage: ;UNK;VAG
     Dates: start: 20110101
  4. NUVARING [Suspect]
     Indication: DYSMENORRHOEA
     Dosage: ;UNK;VAG
     Dates: start: 20110101

REACTIONS (4)
  - MENSTRUATION IRREGULAR [None]
  - DEVICE EXPULSION [None]
  - OFF LABEL USE [None]
  - APPENDICITIS [None]
